FAERS Safety Report 16787848 (Version 1)
Quarter: 2019Q3

REPORT INFORMATION
  Report Type: Spontaneous
  Country: US (occurrence: US)
  Receive Date: 20190909
  Receipt Date: 20190909
  Transmission Date: 20191005
  Serious: Yes (Death)
  Sender: FDA-Public Use
  Company Number: US-CELGENEUS-USA-20190901994

PATIENT
  Age: 63 Year
  Sex: Female
  Weight: 46.8 kg

DRUGS (1)
  1. ABRAXANE [Suspect]
     Active Substance: PACLITAXEL
     Indication: NEOPLASM MALIGNANT
     Dosage: 75 MILLIGRAM/SQ. METER
     Route: 041
     Dates: start: 20190809, end: 20190830

REACTIONS (1)
  - Death [Fatal]

NARRATIVE: CASE EVENT DATE: 20190906
